FAERS Safety Report 8119670-X (Version None)
Quarter: 2012Q1

REPORT INFORMATION
  Report Type: 
  Country: None (occurrence: None)
  Receive Date: 20120207
  Receipt Date: 20120131
  Transmission Date: 20120608
  Serious: Yes (Hospitalization)
  Sender: FDA-Public Use
  Company Number: MY-JNJFOC-20120109141

PATIENT
  Sex: Male
  Weight: 66.5 kg

DRUGS (3)
  1. ABIRATERONE ACETATE [Suspect]
     Indication: PROSTATE CANCER METASTATIC
     Route: 048
     Dates: start: 20111210, end: 20120119
  2. PREDNISOLONE [Suspect]
     Indication: PROSTATE CANCER METASTATIC
     Route: 065
     Dates: start: 20111223, end: 20120119
  3. ABIRATERONE ACETATE [Suspect]
     Route: 048

REACTIONS (1)
  - IMPAIRED GASTRIC EMPTYING [None]
